FAERS Safety Report 9242580 (Version 1)
Quarter: 2013Q2

REPORT INFORMATION
  Report Type: Spontaneous
  Country: US (occurrence: US)
  Receive Date: 20130419
  Receipt Date: 20130419
  Transmission Date: 20140414
  Serious: Yes (Death, Hospitalization)
  Sender: FDA-Public Use
  Company Number: US-GLAXOSMITHKLINE-A0788066A

PATIENT
  Age: 83 Year
  Sex: Female
  Weight: 77.3 kg

DRUGS (1)
  1. AVANDIA [Suspect]
     Indication: TYPE 2 DIABETES MELLITUS
     Dosage: 4MG PER DAY
     Route: 048
     Dates: start: 20070129, end: 20070602

REACTIONS (3)
  - Cardio-respiratory arrest [Fatal]
  - Cardiac failure congestive [Unknown]
  - Coronary artery occlusion [Unknown]
